FAERS Safety Report 15279852 (Version 1)
Quarter: 2018Q3

REPORT INFORMATION
  Report Type: Report from Study
  Country: NL (occurrence: NL)
  Receive Date: 20180815
  Receipt Date: 20180815
  Transmission Date: 20181010
  Serious: Yes (Hospitalization, Other)
  Sender: FDA-Public Use
  Company Number: NL-PFIZER INC-2018324131

PATIENT
  Age: 65 Year
  Sex: Female
  Weight: 90 kg

DRUGS (53)
  1. SPIRONOLACTON [Concomitant]
     Active Substance: SPIRONOLACTONE
     Dosage: 1 DF, 1X/DAY
     Route: 048
  2. BUDESONIDE. [Concomitant]
     Active Substance: BUDESONIDE
     Dosage: UNK
     Route: 048
  3. PARACETAMOL [Concomitant]
     Active Substance: ACETAMINOPHEN
     Dosage: 1 DF, 3X/DAY
     Route: 048
  4. SODIUM CHLORIDE. [Concomitant]
     Active Substance: SODIUM CHLORIDE
     Dosage: 1 DF, MONTHLY
     Route: 058
  5. IPRATROPIUM W/SALBUTAMOL [Concomitant]
     Dosage: UNK
     Route: 048
  6. COLECALCIFEROL [Concomitant]
     Active Substance: CHOLECALCIFEROL
     Dosage: 2 DF, UNK
     Route: 048
  7. TIOTROPIUM [Concomitant]
     Active Substance: TIOTROPIUM
     Dosage: 2 DF, 1X/DAY
     Route: 048
  8. NEBUSAL [Suspect]
     Active Substance: SODIUM CHLORIDE
     Dosage: 2 DF, 1X/DAY
     Route: 055
  9. LEVOTHYROXINE. [Concomitant]
     Active Substance: LEVOTHYROXINE
     Dosage: 1 DF, 1X/DAY
  10. PARACETAMOL [Concomitant]
     Active Substance: ACETAMINOPHEN
     Dosage: 1 DF, 4X/DAY
     Route: 048
  11. ALGELDRATE W/MAGNESIUM HYDROXIDE [Concomitant]
     Dosage: 15 ML, 2X/DAY
     Route: 048
  12. SUMATRIPTAN. [Concomitant]
     Active Substance: SUMATRIPTAN
     Dosage: UNK
     Route: 048
  13. DESLORATADINE. [Concomitant]
     Active Substance: DESLORATADINE
     Dosage: 1 DF, 2X/DAY
     Route: 048
  14. COLISTINE [Concomitant]
     Active Substance: COLISTIN
     Dosage: 1 DF, TWICE A DAY
     Route: 048
  15. METFORMINE [Concomitant]
     Active Substance: METFORMIN HYDROCHLORIDE
     Dosage: 1 DF, 2X/DAY
     Route: 048
  16. ADENURIC [Suspect]
     Active Substance: FEBUXOSTAT
     Dosage: UNK
  17. COLCHICINE. [Concomitant]
     Active Substance: COLCHICINE
     Dosage: 1 DF, 2X/DAY
     Route: 048
  18. ACETYLCYSTEINE. [Concomitant]
     Active Substance: ACETYLCYSTEINE
     Dosage: 1 DF, DAILY
     Route: 048
  19. TERIPARATIDE [Suspect]
     Active Substance: TERIPARATIDE
     Dosage: 20 UG, 1X/DAY
     Route: 058
     Dates: start: 20160316, end: 20160323
  20. TERIPARATIDE [Suspect]
     Active Substance: TERIPARATIDE
     Dosage: 20 UG, 1X/DAY
     Route: 058
     Dates: end: 201612
  21. TERIPARATIDE [Suspect]
     Active Substance: TERIPARATIDE
     Dosage: 20 UG, 1X/DAY
     Route: 058
     Dates: start: 20170116
  22. CODEINE [Concomitant]
     Active Substance: CODEINE
     Dosage: 1 DF, 3X/DAY
     Route: 048
  23. LABETALOL [Concomitant]
     Active Substance: LABETALOL\LABETALOL HYDROCHLORIDE
     Dosage: 1 DF, 1X/DAY
     Route: 048
  24. METOCLOPRAMIDE. [Concomitant]
     Active Substance: METOCLOPRAMIDE
     Dosage: 1 DF, AS NEEDED
  25. BENZBROMARON [Concomitant]
     Dosage: 0.5 DF, 1X/DAY
     Route: 048
  26. CALCIUMCARBONAAT [Concomitant]
     Dosage: 2 DF, 1X/DAY
     Route: 048
  27. OXYCODON [Concomitant]
     Active Substance: OXYCODONE
     Dosage: UNK
     Route: 048
  28. PREGABALINE [Concomitant]
     Active Substance: PREGABALIN
     Dosage: 3 DF, TWICE A DAY
     Route: 048
  29. PANTOPRAZOL [Concomitant]
     Active Substance: PANTOPRAZOLE SODIUM
     Dosage: 1 DF, TWICE A DAY
     Route: 048
  30. LEVOTHYROXINE. [Concomitant]
     Active Substance: LEVOTHYROXINE
     Dosage: 3 DF, 1X/DAY
     Route: 048
  31. KALIUMCHLORIDE [Concomitant]
     Dosage: 1 DF, 3X/DAY
     Route: 048
  32. MOXIFLOXACINE [Concomitant]
     Active Substance: MOXIFLOXACIN
     Dosage: 1 DF, 1X/DAY
     Route: 048
  33. CARBASALAATCALCIUM [Concomitant]
     Active Substance: CARBASPIRIN
     Dosage: 1 DF, 1X/DAY
     Route: 048
  34. PREDNISOLON /00016201/ [Concomitant]
     Active Substance: PREDNISOLONE
     Dosage: 1 DF, 1X/DAY
  35. AZITHROMYCIN ANHYDROUS. [Suspect]
     Active Substance: AZITHROMYCIN ANHYDROUS
     Dosage: UNK
  36. TERIPARATIDE [Suspect]
     Active Substance: TERIPARATIDE
     Indication: OSTEOPOROSIS
     Dosage: 20 UG, 1X/DAY
     Route: 058
     Dates: start: 20160128, end: 201602
  37. BECLOMETASONE DIPROPIONATE W/FORMOTEROL FUMAR [Concomitant]
     Active Substance: BECLOMETHASONE\FORMOTEROL
     Dosage: 2 DF, 3X/DAY
     Route: 048
  38. HIDROXOCOBALAMINA [Concomitant]
     Dosage: UNK
     Route: 058
  39. OXICODONA [Concomitant]
     Active Substance: OXYCODONE
     Dosage: 2 DF, 4X/DAY
     Route: 048
  40. EZETIMIBE W/SIMVASTATIN [Concomitant]
     Active Substance: EZETIMIBE
     Dosage: 1 DF, 1X/DAY
     Route: 048
  41. ITRACONAZOL [Concomitant]
     Active Substance: ITRACONAZOLE
     Dosage: 1 DF, 2X/DAY
     Route: 048
  42. MACROGOL [Concomitant]
     Active Substance: POLYETHYLENE GLYCOLS
     Dosage: UNK
     Route: 048
  43. BENZBROMARON [Concomitant]
     Dosage: 1 DF, 1X/DAY
     Route: 048
  44. AZITROMYCINE [Concomitant]
     Active Substance: AZITHROMYCIN
     Dosage: 1 DF, THREE TIMES PER WEEK
     Route: 048
  45. AZITROMYCINE [Concomitant]
     Active Substance: AZITHROMYCIN
     Dosage: 1 DF, THREE TIMES A WEEK
     Route: 048
  46. PARACETAMOL CODEINE [Concomitant]
     Active Substance: ACETAMINOPHEN\CODEINE PHOSPHATE
     Dosage: UNK
     Route: 054
  47. FENTANYL. [Concomitant]
     Active Substance: FENTANYL
     Dosage: UNK
     Route: 061
  48. METOCLOPRAMIDE. [Concomitant]
     Active Substance: METOCLOPRAMIDE
     Dosage: 1 DF, AS NEEDED
     Route: 048
  49. SALBUTAMOL [Concomitant]
     Active Substance: ALBUTEROL
     Dosage: UNK
     Route: 055
  50. NYSTATINE [Concomitant]
     Dosage: 5 ML, FOUR TIMES A DAY
     Route: 048
  51. NORTRIPTYLINE [Concomitant]
     Active Substance: NORTRIPTYLINE
     Dosage: UNK
     Route: 048
  52. BUMETANIDE. [Concomitant]
     Active Substance: BUMETANIDE
     Dosage: 1 DF, 2X/DAY
     Route: 048
  53. FLUTICASONE FUROATE [Concomitant]
     Active Substance: FLUTICASONE FUROATE
     Dosage: 2 DF, 1X/DAY
     Route: 045

REACTIONS (17)
  - Vomiting [Not Recovered/Not Resolved]
  - Malaise [Not Recovered/Not Resolved]
  - Appetite disorder [Not Recovered/Not Resolved]
  - Dizziness [Not Recovered/Not Resolved]
  - Headache [Not Recovered/Not Resolved]
  - Pneumonia [Not Recovered/Not Resolved]
  - Sense of oppression [Unknown]
  - Myalgia [Not Recovered/Not Resolved]
  - Nausea [Not Recovered/Not Resolved]
  - Condition aggravated [Unknown]
  - Weight decreased [Not Recovered/Not Resolved]
  - Hypersensitivity [Unknown]
  - Bone pain [Not Recovered/Not Resolved]
  - Back pain [Recovering/Resolving]
  - Dehydration [Unknown]
  - Fatigue [Not Recovered/Not Resolved]
  - Chronic obstructive pulmonary disease [Unknown]

NARRATIVE: CASE EVENT DATE: 20160128
